FAERS Safety Report 19701938 (Version 1)
Quarter: 2021Q3

REPORT INFORMATION
  Report Type: Other
  Country: CA (occurrence: CA)
  Receive Date: 20210814
  Receipt Date: 20210814
  Transmission Date: 20211014
  Serious: Yes (Other)
  Sender: FDA-Public Use
  Company Number: CA-GLENMARK PHARMACEUTICALS-2021GMK067211

PATIENT

DRUGS (7)
  1. GABAPENTIN. [Suspect]
     Active Substance: GABAPENTIN
     Indication: PAIN
     Dosage: 1200 MILLIGRAM, TID
     Route: 048
  2. DICLOFENAC [Interacting]
     Active Substance: DICLOFENAC
     Indication: PRODUCT USED FOR UNKNOWN INDICATION
     Route: 065
  3. FENTANYL. [Interacting]
     Active Substance: FENTANYL
     Dosage: 25 MICROGRAM, 1 EVERY 72 HOURS
     Route: 065
  4. FENTANYL. [Interacting]
     Active Substance: FENTANYL
     Indication: PAIN
     Dosage: 150 MICROGRAM, 1 1 EVERY 48 HOURS
     Route: 065
  5. NAPROXEN. [Interacting]
     Active Substance: NAPROXEN
     Indication: PAIN
     Dosage: 200 MILLIGRAM, BID
     Route: 048
  6. ACETAMINOPHEN. [Interacting]
     Active Substance: ACETAMINOPHEN
     Indication: PAIN
     Dosage: UNK
     Route: 048
  7. MORPHINE [Interacting]
     Active Substance: MORPHINE
     Indication: PAIN
     Dosage: 10 MILLIGRAM, 5 EVERY 1 DAYS
     Route: 048

REACTIONS (3)
  - Withdrawal syndrome [Unknown]
  - Drug interaction [Unknown]
  - Product use in unapproved indication [Unknown]
